FAERS Safety Report 4917607-5 (Version None)
Quarter: 2006Q1

REPORT INFORMATION
  Report Type: 
  Country: None (occurrence: None)
  Receive Date: 20060221
  Receipt Date: 20060209
  Transmission Date: 20060701
  Serious: Yes (Other)
  Sender: FDA-Public Use
  Company Number: GB-JNJFOC-20060202998

PATIENT
  Age: 14 Year
  Sex: Male

DRUGS (2)
  1. CONCERTA [Suspect]
     Dosage: TAKEN IN THE MORNING.
     Route: 048
  2. METHYLPHENIDATE [Concomitant]
     Dosage: INSTANT RELEASE - TAKEN AT 4PM.

REACTIONS (2)
  - CYANOSIS [None]
  - RAYNAUD'S PHENOMENON [None]
